FAERS Safety Report 16825017 (Version 1)
Quarter: 2019Q3

REPORT INFORMATION
  Report Type: Spontaneous
  Country: CN (occurrence: CN)
  Receive Date: 20190919
  Receipt Date: 20190919
  Transmission Date: 20191005
  Serious: Yes (Hospitalization)
  Sender: FDA-Public Use
  Company Number: CN-BAXTER-2019BAX018162

PATIENT
  Age: 50 Year
  Sex: Female
  Weight: 48 kg

DRUGS (4)
  1. ENDOXAN [Suspect]
     Active Substance: CYCLOPHOSPHAMIDE
     Indication: BREAST CANCER FEMALE
     Dosage: RATE: 30 TO 40 DROPS PER MINUTE, CYCLOPHOSPHAMIDE + 0.9 % SODIUM CHLORIDE OF 250 ML
     Route: 041
     Dates: start: 20190823, end: 20190823
  2. GLUCOSE [Suspect]
     Active Substance: DEXTROSE
     Indication: MEDICATION DILUTION
     Dosage: RATE: 30 TO 40 DROPS PER MINUTE, 2.5% GLUCOSE INJECTION + PIRARUBICIN HYDROCHLORIDE 72 MG
     Route: 041
     Dates: start: 20190823, end: 20190823
  3. 0.9% SODIUM CHLORIDE INJECTION [Suspect]
     Active Substance: SODIUM CHLORIDE
     Indication: MEDICATION DILUTION
     Dosage: RATE: 30 TO 40 DROPS PER MINUTE, 0.9% SODIUM CHLORIDE + CYCLOPHOSPHAMIDE 0.8 G
     Route: 041
     Dates: start: 20190823, end: 20190823
  4. PIRARUBICIN HYDROCHLORIDE [Suspect]
     Active Substance: PIRARUBICIN HYDROCHLORIDE
     Indication: BREAST CANCER FEMALE
     Dosage: RATE: 30 TO 40 DROPS PER MINUTE, 2.5% GLUCOSE INJECTION 250 ML + PIRARUBICIN HYDROCHLORIDE
     Route: 041
     Dates: start: 20190823, end: 20190823

REACTIONS (1)
  - Leukopenia [Recovering/Resolving]

NARRATIVE: CASE EVENT DATE: 20190902
